FAERS Safety Report 7534834-1 (Version None)
Quarter: 2011Q2

REPORT INFORMATION
  Report Type: 
  Country: None (occurrence: None)
  Receive Date: 20110609
  Receipt Date: 20080929
  Transmission Date: 20111010
  Serious: Yes (Death, Hospitalization)
  Sender: FDA-Public Use
  Company Number: PHHY2008GB19902

PATIENT
  Sex: Male

DRUGS (3)
  1. CLOZAPINE [Suspect]
     Route: 048
     Dates: start: 19921224, end: 20070227
  2. CLOZAPINE [Suspect]
  3. CLOZAPINE [Suspect]
     Dates: start: 20070821

REACTIONS (5)
  - DYSPHAGIA [None]
  - LUNG NEOPLASM MALIGNANT [None]
  - OBSTRUCTIVE AIRWAYS DISORDER [None]
  - TERMINAL STATE [None]
  - VEIN DISORDER [None]
